FAERS Safety Report 22036147 (Version 1)
Quarter: 2023Q1

REPORT INFORMATION
  Report Type: Spontaneous
  Country: ES (occurrence: ES)
  Receive Date: 20230225
  Receipt Date: 20230225
  Transmission Date: 20230418
  Serious: Yes (Hospitalization, Other)
  Sender: FDA-Public Use
  Company Number: ES-MLMSERVICE-2023020940967371

PATIENT
  Age: 40 Year
  Sex: Female

DRUGS (3)
  1. LEVOTHYROXINE [Suspect]
     Active Substance: LEVOTHYROXINE
     Dosage: MORE THAN 1250 MICROGRAMS
  2. ACETAMINOPHEN [Concomitant]
     Active Substance: ACETAMINOPHEN
     Dosage: MORE THAN 7 GRAMS
  3. METHOTREXATE [Concomitant]
     Active Substance: METHOTREXATE
     Dosage: MORE THAN 40 MILLIGRAMS

REACTIONS (4)
  - Bipolar I disorder [Recovering/Resolving]
  - Intentional overdose [Unknown]
  - Hyperthyroidism [Recovered/Resolved]
  - Suicidal ideation [Unknown]
